FAERS Safety Report 5314460-5 (Version None)
Quarter: 2007Q2

REPORT INFORMATION
  Report Type: 
  Country: None (occurrence: None)
  Receive Date: 20070502
  Receipt Date: 20070424
  Transmission Date: 20071010
  Serious: Yes (Hospitalization)
  Sender: FDA-Public Use
  Company Number: HQWYE863626APR07

PATIENT
  Age: 41 Year
  Sex: Male

DRUGS (5)
  1. EFFEXOR [Suspect]
     Indication: DEPRESSION
  2. EFFEXOR [Suspect]
  3. OPIUM ALKALOIDS TOTAL [Suspect]
     Dosage: UNKNOWN
     Route: 055
  4. QUILONORM RETARD [Suspect]
  5. DEPAKENE [Suspect]

REACTIONS (3)
  - AGGRESSION [None]
  - MANIA [None]
  - SEROTONIN SYNDROME [None]
